FAERS Safety Report 20458560 (Version 10)
Quarter: 2022Q4

REPORT INFORMATION
  Report Type: Spontaneous
  Country: GB (occurrence: GB)
  Receive Date: 20220211
  Receipt Date: 20221227
  Transmission Date: 20230112
  Serious: Yes (Other)
  Sender: FDA-Public Use
  Company Number: GB-AUROBINDO-AUR-APL-2012-03774

PATIENT
  Age: 15 Year
  Sex: Female

DRUGS (9)
  1. CETIRIZINE HYDROCHLORIDE [Interacting]
     Active Substance: CETIRIZINE HYDROCHLORIDE
     Indication: Seasonal allergy
     Dosage: 1 MILLIGRAM, ONCE A DAY(,ONCE A DAY (OCCASIONAL CETIRIZINE))
     Route: 048
  2. ARIPIPRAZOLE [Interacting]
     Active Substance: ARIPIPRAZOLE
     Indication: Bipolar disorder
     Dosage: UNK
     Route: 065
  3. LAMOTRIGINE [Suspect]
     Active Substance: LAMOTRIGINE
     Indication: Bipolar disorder
     Dosage: 50 MILLIGRAM, 3 TIMES A DAY
     Route: 048
  4. ABILIFY [Suspect]
     Active Substance: ARIPIPRAZOLE
     Indication: Bipolar disorder
     Dosage: UNK
     Route: 048
  5. LAMICTAL [Interacting]
     Active Substance: LAMOTRIGINE
     Indication: Bipolar disorder
     Dosage: 50 MILLIGRAM, ONCE A DAY
     Route: 048
  6. LAMICTAL [Interacting]
     Active Substance: LAMOTRIGINE
     Dosage: 50 MILLIGRAM, 3 TIMES A DAY
     Route: 048
  7. LAMICTAL [Interacting]
     Active Substance: LAMOTRIGINE
     Dosage: 50 MILLIGRAM, TWO TIMES A DAY
     Route: 048
  8. LAMICTAL [Interacting]
     Active Substance: LAMOTRIGINE
     Dosage: 150 MILLIGRAM, ONCE A DAY/50 MILLIGRAM, 3 TIMES A DAY/ 150 MILLIGRAM DAILY
     Route: 048
  9. NEXPLANON [Suspect]
     Active Substance: ETONOGESTREL
     Indication: Contraception
     Dosage: 68 MILLIGRAM
     Route: 059

REACTIONS (10)
  - Abortion spontaneous [Unknown]
  - Drug interaction [Unknown]
  - Exposure during pregnancy [Unknown]
  - Intermenstrual bleeding [Unknown]
  - Maternal exposure during pregnancy [Recovered/Resolved]
  - Pregnancy with implant contraceptive [Recovered/Resolved]
  - Pregnancy on contraceptive [Recovered/Resolved]
  - Pregnancy with contraceptive device [Recovered/Resolved]
  - Pregnancy [Recovered/Resolved]
  - Unintended pregnancy [Recovered/Resolved]
